FAERS Safety Report 13555221 (Version 1)
Quarter: 2017Q2

REPORT INFORMATION
  Report Type: Spontaneous
  Country: TW (occurrence: TW)
  Receive Date: 20170517
  Receipt Date: 20170517
  Transmission Date: 20170830
  Serious: Yes (Other)
  Sender: FDA-Public Use
  Company Number: TW-PFIZER INC-2017207268

PATIENT
  Age: 77 Year
  Sex: Female

DRUGS (1)
  1. XALATAN [Suspect]
     Active Substance: LATANOPROST
     Indication: INTRAOCULAR PRESSURE INCREASED
     Dosage: 2 GTT, 1X/DAY, (1 DROP OU(BILATERAL EYES) HORS SOMNI )
     Route: 047

REACTIONS (4)
  - Dry eye [Recovering/Resolving]
  - Ocular hyperaemia [Unknown]
  - Keratorhexis [Recovering/Resolving]
  - Eye irritation [Recovering/Resolving]
